FAERS Safety Report 20035057 (Version 3)
Quarter: 2022Q1

REPORT INFORMATION
  Report Type: Spontaneous
  Country: CH (occurrence: CH)
  Receive Date: 20211104
  Receipt Date: 20220118
  Transmission Date: 20220423
  Serious: Yes (Life-Threatening, Hospitalization, Other)
  Sender: FDA-Public Use
  Company Number: CH-AMERICAN REGENT INC-2021002854

PATIENT
  Sex: Female
  Weight: 47 kg

DRUGS (2)
  1. VENOFER [Suspect]
     Active Substance: IRON SUCROSE
     Indication: Iron deficiency
     Dosage: 500 MG, ^AT A TIME INTERVAL OF 2 HOURS^
     Dates: start: 20210921, end: 20210921
  2. VENOFER [Suspect]
     Active Substance: IRON SUCROSE
     Indication: Anaemia

REACTIONS (4)
  - Hypovolaemic shock [Recovered/Resolved]
  - Circulatory collapse [Unknown]
  - Chest pain [Unknown]
  - Drug hypersensitivity [Unknown]

NARRATIVE: CASE EVENT DATE: 20210101
